FAERS Safety Report 8345279-9 (Version None)
Quarter: 2012Q2

REPORT INFORMATION
  Report Type: 
  Country: None (occurrence: None)
  Receive Date: 20120508
  Receipt Date: 20120504
  Transmission Date: 20120825
  Serious: Yes (Hospitalization, Other)
  Sender: FDA-Public Use
  Company Number: GB-BAYER-2012-013442

PATIENT
  Age: 69 Year
  Sex: Female

DRUGS (8)
  1. MEBEVERINE [Concomitant]
     Dosage: UNK UNK, BID
     Dates: start: 20100101
  2. THEOPHYLLINE [Concomitant]
     Dosage: UNK UNK, BID
     Dates: start: 20080101
  3. AVELOX [Suspect]
     Dosage: 1 DF, QD
     Dates: start: 20101215
  4. FLUTICASONE PROPIONATE/SALMETEROL [Concomitant]
     Dosage: UNK UNK, BID
     Dates: start: 20080101
  5. CALCEOS [Concomitant]
     Dosage: UNK UNK, BID
     Dates: start: 20110101
  6. AVELOX [Suspect]
     Dosage: 400 MG, QD
     Dates: start: 20120121, end: 20120131
  7. VENTOLIN NEBULES P.F. [Concomitant]
     Dosage: DOSAGE: 5MG TQDS
     Dates: start: 20100101
  8. ALENDRONIC ACID [Concomitant]
     Dosage: UNK UNK, OW
     Dates: start: 20110101

REACTIONS (24)
  - DIARRHOEA HAEMORRHAGIC [None]
  - SWELLING FACE [None]
  - MALAISE [None]
  - ORAL PAIN [None]
  - ANXIETY [None]
  - TREMOR [None]
  - CLOSTRIDIAL INFECTION [None]
  - PARAESTHESIA [None]
  - VOMITING [None]
  - HEADACHE [None]
  - DYSPEPSIA [None]
  - INSOMNIA [None]
  - DYSPNOEA [None]
  - DECREASED APPETITE [None]
  - DEHYDRATION [None]
  - HAEMORRHOIDS [None]
  - VISION BLURRED [None]
  - DRY SKIN [None]
  - DIARRHOEA [None]
  - RESTLESSNESS [None]
  - CONJUNCTIVITIS [None]
  - TINNITUS [None]
  - ALOPECIA [None]
  - INTESTINAL PROLAPSE [None]
